FAERS Safety Report 8906341 (Version 1)
Quarter: 2012Q4

REPORT INFORMATION
  Report Type: Spontaneous
  Country: FR (occurrence: None)
  Receive Date: 20121107
  Receipt Date: 20121107
  Transmission Date: 20130627
  Serious: Yes (Hospitalization)
  Sender: FDA-Public Use
  Company Number: DSA_60690_2012

PATIENT
  Age: 58 Year
  Sex: Male

DRUGS (5)
  1. MONO-TILDIEM [Suspect]
     Indication: ATRIAL FIBRILLATION
     Route: 048
     Dates: start: 20120401, end: 20120415
  2. TRIFLUCAN [Suspect]
     Indication: FUNGAL INFECTION
     Route: 048
     Dates: start: 20110411, end: 20110415
  3. HEMIGOXINE NATIVELLE [Concomitant]
  4. CORDARONE [Concomitant]
  5. ANTITHROMBOTIC AGENTS [Concomitant]

REACTIONS (3)
  - Toxic skin eruption [None]
  - Dyspnoea [None]
  - Chest pain [None]
